FAERS Safety Report 9402370 (Version 1)
Quarter: 2013Q3

REPORT INFORMATION
  Report Type: Spontaneous
  Country: US (occurrence: US)
  Receive Date: 20130716
  Receipt Date: 20130716
  Transmission Date: 20140515
  Serious: No
  Sender: FDA-Public Use
  Company Number: US-BAYER-2013-085854

PATIENT
  Age: 60 Year
  Sex: Female

DRUGS (2)
  1. SORAFENIB (RAF KINASE INHIBITOR) [Suspect]
     Indication: COLON CANCER METASTATIC
     Dosage: 400 MG, BID
  2. CETUXIMAB [Concomitant]
     Indication: COLON CANCER METASTATIC
     Dosage: 500 MG/M2 WEEKLY

REACTIONS (1)
  - Off label use [None]
